FAERS Safety Report 19877598 (Version 1)
Quarter: 2021Q3

REPORT INFORMATION
  Report Type: Report from Study
  Country: BR (occurrence: BR)
  Receive Date: 20210923
  Receipt Date: 20210923
  Transmission Date: 20211014
  Serious: Yes (Other)
  Sender: FDA-Public Use
  Company Number: BR-TAKEDA-2021TUS058518

PATIENT
  Sex: Male

DRUGS (6)
  1. FACTOR VIII INHIBITOR BYPASSING FRACTION; BAXJECT II NF [Suspect]
     Active Substance: ANTI-INHIBITOR COAGULANT COMPLEX
     Dosage: 4000 INTERNATIONAL UNIT, 2/WEEK
     Route: 042
  2. LOSARTAN. [Concomitant]
     Active Substance: LOSARTAN
     Indication: HYPERTENSION
  3. AMLODIPINE [Concomitant]
     Active Substance: AMLODIPINE BESYLATE
     Indication: HYPERTENSION
  4. FACTOR VIII INHIBITOR BYPASSING FRACTION; BAXJECT II NF [Suspect]
     Active Substance: ANTI-INHIBITOR COAGULANT COMPLEX
     Indication: PRODUCT USED FOR UNKNOWN INDICATION
     Dosage: 3000 INTERNATIONAL UNIT, 2/WEEK
     Route: 042
  5. FACTOR VIII INHIBITOR BYPASSING FRACTION; BAXJECT II NF [Suspect]
     Active Substance: ANTI-INHIBITOR COAGULANT COMPLEX
     Dosage: 5000 INTERNATIONAL UNIT, 2/WEEK
     Route: 042
  6. ARTRIL [Concomitant]

REACTIONS (15)
  - Fear [Unknown]
  - Body temperature increased [Unknown]
  - Muscle atrophy [Unknown]
  - Thrombosis [Unknown]
  - Cardiac disorder [Unknown]
  - Osteoarthritis [Unknown]
  - Decreased appetite [Unknown]
  - Confusional state [Unknown]
  - Stress [Unknown]
  - Product administration error [Unknown]
  - Haemorrhage [Unknown]
  - Pigmentation disorder [Unknown]
  - Blood pressure increased [Unknown]
  - Head discomfort [Unknown]
  - Inappropriate schedule of product administration [Unknown]
